FAERS Safety Report 7316050-1 (Version None)
Quarter: 2011Q1

REPORT INFORMATION
  Report Type: 
  Country: None (occurrence: None)
  Receive Date: 20110225
  Receipt Date: 20110217
  Transmission Date: 20110831
  Serious: Yes (Other)
  Sender: FDA-Public Use
  Company Number: CA-JNJFOC-20110206516

PATIENT
  Sex: Female
  Weight: 78.02 kg

DRUGS (6)
  1. AMITRIPTYLINE HCL [Concomitant]
     Route: 065
  2. IMURAN [Concomitant]
     Route: 065
  3. RABEPRAZOLE SODIUM [Concomitant]
     Route: 065
  4. CLONAZEPAM [Concomitant]
     Route: 065
  5. PAROXETINE [Concomitant]
     Route: 065
  6. REMICADE [Suspect]
     Indication: CROHN'S DISEASE
     Route: 042

REACTIONS (3)
  - SOMNOLENCE [None]
  - FATIGUE [None]
  - CONFUSIONAL STATE [None]
